FAERS Safety Report 6625913-1 (Version None)
Quarter: 2010Q1

REPORT INFORMATION
  Report Type: 
  Country: None (occurrence: None)
  Receive Date: 20100310
  Receipt Date: 20100222
  Transmission Date: 20100710
  Serious: Yes (Death)
  Sender: FDA-Public Use
  Company Number: JP-BAYER-201010669BYL

PATIENT
  Age: 69 Year
  Sex: Male

DRUGS (3)
  1. ADALAT CC [Suspect]
     Indication: DRUG USE FOR UNKNOWN INDICATION
     Dosage: AS USED: 20 MG
     Route: 048
     Dates: start: 20100202, end: 20100204
  2. ARICEPT [Suspect]
     Route: 048
  3. OLMESARTAN MEDOXOMIL [Suspect]
     Route: 048

REACTIONS (3)
  - CARDIAC ARREST [None]
  - FACE OEDEMA [None]
  - OEDEMA PERIPHERAL [None]
